FAERS Safety Report 7331606-8 (Version None)
Quarter: 2011Q1

REPORT INFORMATION
  Report Type: 
  Country: None (occurrence: None)
  Receive Date: 20110304
  Receipt Date: 20110302
  Transmission Date: 20110831
  Serious: Yes (Hospitalization, Other)
  Sender: FDA-Public Use
  Company Number: US-AMGEN-USASP2010009844

PATIENT
  Age: 70 Year
  Sex: Female

DRUGS (10)
  1. NPLATE [Suspect]
     Indication: IDIOPATHIC THROMBOCYTOPENIC PURPURA
     Dosage: 568 A?G, QD
     Dates: start: 20080701
  2. ZOLPIDEM [Concomitant]
  3. PRAVACHOL [Concomitant]
  4. ALLOPURINOL [Concomitant]
  5. AMLODIPINE [Concomitant]
  6. SODIUM BICARBONATE [Concomitant]
  7. SPIRONOLACTONE [Concomitant]
  8. LASIX [Concomitant]
  9. LANTUS [Concomitant]
  10. VITAMIN A [Concomitant]

REACTIONS (3)
  - PORTAL VEIN THROMBOSIS [None]
  - CHEST PAIN [None]
  - SPLENOMEGALY [None]
